FAERS Safety Report 4392459-3 (Version None)
Quarter: 2004Q3

REPORT INFORMATION
  Report Type: 
  Country: None (occurrence: None)
  Receive Date: 20040702
  Receipt Date: 20040419
  Transmission Date: 20050211
  Serious: Yes (Other)
  Sender: FDA-Public Use
  Company Number: 2004UW04489

PATIENT
  Age: 61 Year
  Sex: Female
  Weight: 98.8842 kg

DRUGS (4)
  1. CRESTOR [Suspect]
     Indication: BLOOD CHOLESTEROL INCREASED
     Dosage: 10 MG QD PO
     Route: 048
     Dates: start: 20040223, end: 20040309
  2. SYNTHROID [Concomitant]
  3. HIGH BLOOD PRESSURE MEDICATION [Concomitant]
  4. AVAPRO [Concomitant]

REACTIONS (3)
  - FEELING HOT [None]
  - MASS [None]
  - PAIN IN EXTREMITY [None]
